FAERS Safety Report 8916360 (Version 1)
Quarter: 2012Q4

REPORT INFORMATION
  Report Type: 
  Country: US (occurrence: US)
  Receive Date: 20121120
  Receipt Date: 20121120
  Transmission Date: 20130627
  Serious: Yes (Hospitalization, Other)
  Sender: FDA-Public Use
  Company Number: US-SANOFI-AVENTIS-2012SA082418

PATIENT
  Sex: Female

DRUGS (3)
  1. LANTUS [Suspect]
     Indication: TYPE II DIABETES MELLITUS
     Dosage: Dose:70 unit(s)
     Route: 058
  2. SOLOSTAR [Suspect]
     Indication: TYPE II DIABETES MELLITUS
  3. NOVOLOG [Concomitant]
     Dosage: sliding scale

REACTIONS (5)
  - Cardiac failure congestive [Unknown]
  - Coronary arterial stent insertion [Unknown]
  - Hyperglycaemia [Unknown]
  - Hyperhidrosis [Unknown]
  - Visual impairment [Unknown]
